FAERS Safety Report 4463163-8 (Version None)
Quarter: 2004Q3

REPORT INFORMATION
  Report Type: 
  Country: None (occurrence: None)
  Receive Date: 20040928
  Receipt Date: 20040913
  Transmission Date: 20050211
  Serious: Yes (Disabling)
  Sender: FDA-Public Use
  Company Number: 2004SE04543

PATIENT
  Age: 58 Year
  Sex: Male

DRUGS (4)
  1. BLOPRESS [Suspect]
     Indication: HYPERTENSION
     Dosage: 8 MG QD PO
     Route: 048
     Dates: start: 20040304, end: 20040720
  2. TENORMIN [Suspect]
     Indication: HYPERTENSION
     Dosage: 25 MG QD PO
     Route: 048
     Dates: start: 20040520, end: 20040630
  3. TENORMIN [Suspect]
     Indication: HYPERTENSION
     Dosage: 50 MG QD PO
     Route: 048
     Dates: start: 20040701, end: 20040720
  4. DIOVAN [Concomitant]

REACTIONS (5)
  - BLISTER [None]
  - HYPERKERATOSIS [None]
  - PSORIASIS [None]
  - RASH [None]
  - SKIN DESQUAMATION [None]
